FAERS Safety Report 16993863 (Version 2)
Quarter: 2019Q4

REPORT INFORMATION
  Report Type: Spontaneous
  Country: PT (occurrence: PT)
  Receive Date: 20191105
  Receipt Date: 20191111
  Transmission Date: 20200122
  Serious: Yes (Other)
  Sender: FDA-Public Use
  Company Number: PT-PFIZER INC-2019466835

PATIENT
  Age: 58 Year
  Sex: Female

DRUGS (4)
  1. TRAMADOL. [Suspect]
     Active Substance: TRAMADOL
     Dosage: UNK, AS NEEDED (IN SOS)
  2. TAPENTADOL [Concomitant]
     Active Substance: TAPENTADOL
     Dosage: UNK
  3. PREGABALIN. [Suspect]
     Active Substance: PREGABALIN
     Dosage: UNK (ON SCHEDULE)
  4. PARACETAMOL [Suspect]
     Active Substance: ACETAMINOPHEN
     Dosage: UNK, AS NEEDED (IN SOS)

REACTIONS (1)
  - Renal cell carcinoma stage I [Unknown]
